FAERS Safety Report 7311960-3 (Version None)
Quarter: 2011Q1

REPORT INFORMATION
  Report Type: 
  Country: None (occurrence: None)
  Receive Date: 20110224
  Receipt Date: 20110215
  Transmission Date: 20110831
  Serious: Yes (Other)
  Sender: FDA-Public Use
  Company Number: US-ROCHE-735733

PATIENT
  Sex: Male
  Weight: 67.6 kg

DRUGS (3)
  1. ACCUTANE [Suspect]
     Route: 065
     Dates: end: 19991201
  2. ACCUTANE [Suspect]
     Indication: ACNE
     Route: 065
     Dates: start: 19980101, end: 19980601
  3. ACCUTANE [Suspect]
     Route: 065
     Dates: start: 20040601, end: 20041101

REACTIONS (4)
  - INFLAMMATORY BOWEL DISEASE [None]
  - INTESTINAL OBSTRUCTION [None]
  - CROHN'S DISEASE [None]
  - GASTROINTESTINAL INJURY [None]
